FAERS Safety Report 5740363-8 (Version None)
Quarter: 2008Q2

REPORT INFORMATION
  Report Type: 
  Country: None (occurrence: None)
  Receive Date: 20080516
  Receipt Date: 20070831
  Transmission Date: 20081010
  Serious: Yes (Death)
  Sender: FDA-Public Use
  Company Number: US-ASTRAZENECA-2007UW18606

PATIENT
  Age: 42 Year
  Sex: Female
  Weight: 105 kg

DRUGS (2)
  1. SEROQUEL [Suspect]
     Indication: INSOMNIA
     Route: 048
     Dates: start: 20051101
  2. SEROQUEL [Suspect]
     Indication: DEPRESSION
     Route: 048
     Dates: start: 20051101

REACTIONS (4)
  - ARRHYTHMIA [None]
  - CORONARY ARTERY DISEASE [None]
  - DIABETES MELLITUS [None]
  - OBESITY [None]
